FAERS Safety Report 18081374 (Version 2)
Quarter: 2020Q3

REPORT INFORMATION
  Report Type: Spontaneous
  Country: US (occurrence: US)
  Receive Date: 20200728
  Receipt Date: 20200904
  Transmission Date: 20201103
  Serious: Yes (Other)
  Sender: FDA-Public Use
  Company Number: US-ASTRAZENECA-2020SE93458

PATIENT
  Age: 74 Year
  Sex: Male
  Weight: 141.5 kg

DRUGS (1)
  1. PULMICORT FLEXHALER [Suspect]
     Active Substance: BUDESONIDE
     Indication: LUNG DISORDER
     Route: 055
     Dates: start: 202006

REACTIONS (6)
  - Oropharyngeal discomfort [Unknown]
  - Intentional device misuse [Unknown]
  - Pulmonary fibrosis [Unknown]
  - Intentional product misuse [Unknown]
  - Device issue [Unknown]
  - Incorrect dose administered by device [Unknown]

NARRATIVE: CASE EVENT DATE: 2020
